FAERS Safety Report 22884853 (Version 3)
Quarter: 2023Q4

REPORT INFORMATION
  Report Type: Spontaneous
  Country: US (occurrence: US)
  Receive Date: 20230830
  Receipt Date: 20231120
  Transmission Date: 20240109
  Serious: Yes (Other)
  Sender: FDA-Public Use
  Company Number: US-PFIZER INC-202300284018

PATIENT
  Age: 67 Year
  Sex: Female
  Weight: 53.52 kg

DRUGS (4)
  1. BRAFTOVI [Suspect]
     Active Substance: ENCORAFENIB
     Dosage: 300 MG, 1X/DAY [75 MG 4 CAPSULE]
     Route: 048
     Dates: start: 201807, end: 20230816
  2. MEKTOVI [Suspect]
     Active Substance: BINIMETINIB
     Dosage: 150 MG, 2X/DAY [50 MG THINK AND I WAS TAKING 3 TABLET TWICE A DAY ]
     Route: 048
     Dates: start: 201807, end: 20230816
  3. LEVOTHYROXINE [Concomitant]
     Active Substance: LEVOTHYROXINE
     Indication: Thyroid disorder
     Dosage: UNK
     Dates: start: 201608
  4. HYDROCORTISONE [Concomitant]
     Active Substance: HYDROCORTISONE
     Indication: Adrenal insufficiency
     Dosage: 15 MG, DAILY [TAKE 10 MILLIGRAMS BY MOUTH 1 IN THE MORNING AND 5 MILLIGRAMS BY MOUTH AT NIGHT]
     Route: 048
     Dates: start: 201608

REACTIONS (2)
  - Retinal detachment [Recovered/Resolved]
  - Hair texture abnormal [Unknown]

NARRATIVE: CASE EVENT DATE: 20230816
